FAERS Safety Report 9059821 (Version 1)
Quarter: 2013Q1

REPORT INFORMATION
  Report Type: Spontaneous
  Country: US (occurrence: None)
  Receive Date: 20130206
  Receipt Date: 20130206
  Transmission Date: 20140127
  Serious: Yes (Hospitalization)
  Sender: FDA-Public Use
  Company Number: None

PATIENT
  Age: 64 Year
  Sex: Male
  Weight: 101 kg

DRUGS (1)
  1. DENOSUMAB [Suspect]
     Indication: PROSTATE CANCER METASTATIC
     Dosage: EVERY 28 DAYS
     Route: 058

REACTIONS (4)
  - Coagulopathy [None]
  - Haemorrhage [None]
  - International normalised ratio increased [None]
  - Hypocalcaemia [None]
